FAERS Safety Report 14579264 (Version 1)
Quarter: 2018Q1

REPORT INFORMATION
  Report Type: Spontaneous
  Country: US (occurrence: US)
  Receive Date: 20180227
  Receipt Date: 20180227
  Transmission Date: 20180509
  Serious: Yes (Other)
  Sender: FDA-Public Use
  Company Number: US-OTSUKA-DJ201300380

PATIENT

DRUGS (2)
  1. ETHOSUXIMIDE. [Suspect]
     Active Substance: ETHOSUXIMIDE
     Route: 065
  2. ABILIFY [Suspect]
     Active Substance: ARIPIPRAZOLE
     Route: 048

REACTIONS (10)
  - Anxiety [Unknown]
  - Petit mal epilepsy [Unknown]
  - Frustration tolerance decreased [Unknown]
  - Muscle twitching [Unknown]
  - Confusional state [Unknown]
  - Dizziness [Unknown]
  - Agitation [Unknown]
  - Crying [Unknown]
  - Anger [Unknown]
  - Dysarthria [Unknown]
